FAERS Safety Report 19020655 (Version 1)
Quarter: 2021Q1

REPORT INFORMATION
  Report Type: Report from Study
  Country: IE (occurrence: IE)
  Receive Date: 20210317
  Receipt Date: 20210317
  Transmission Date: 20210420
  Serious: Yes (Other)
  Sender: FDA-Public Use
  Company Number: IE-PFIZER INC-2021267493

PATIENT

DRUGS (3)
  1. DOBUTAMINE HCL [Suspect]
     Active Substance: DOBUTAMINE HYDROCHLORIDE
     Indication: STRESS ECHOCARDIOGRAM
     Dosage: 10 UG/KG/MIN, EACH STAGE OVER 3 MIN, GRADED INFUSION
     Route: 042
  2. DOBUTAMINE HCL [Suspect]
     Active Substance: DOBUTAMINE HYDROCHLORIDE
     Dosage: 20 UG/KG (20 UG/KG/MIN, EACH STAGE OVER 3 MIN,  GRADED INFUSION)
     Route: 042
  3. DOBUTAMINE HCL [Suspect]
     Active Substance: DOBUTAMINE HYDROCHLORIDE
     Dosage: 40 UG/KG (40 UG/KG/MIN, EACH STAGE OVER 3 MIN, GRADED INFUSION)
     Route: 042

REACTIONS (4)
  - Bundle branch block left [Recovered/Resolved]
  - Chest pain [Recovered/Resolved]
  - Electrocardiogram ST segment depression [Recovered/Resolved]
  - Ventricular hypokinesia [Recovered/Resolved]
